FAERS Safety Report 25939037 (Version 2)
Quarter: 2025Q4

REPORT INFORMATION
  Report Type: Report from Study
  Country: JP (occurrence: JP)
  Receive Date: 20251019
  Receipt Date: 20251024
  Transmission Date: 20260118
  Serious: Yes (Death)
  Sender: MERCK SHARP & DOHME LLC
  Company Number: JP-009507513-2340700

PATIENT
  Age: 87 Year
  Sex: Female
  Weight: 45 kg

DRUGS (3)
  1. NOXAFIL [Suspect]
     Active Substance: POSACONAZOLE
     Indication: Antifungal prophylaxis
     Route: 048
     Dates: start: 20240930, end: 20240930
  2. NOXAFIL [Suspect]
     Active Substance: POSACONAZOLE
     Indication: Antifungal prophylaxis
     Route: 048
     Dates: start: 20241001, end: 20241030
  3. MEROPENEM [Concomitant]
     Active Substance: MEROPENEM
     Route: 042
     Dates: end: 20241008

REACTIONS (1)
  - Acute myeloid leukaemia [Fatal]
